FAERS Safety Report 12391631 (Version 3)
Quarter: 2016Q3

REPORT INFORMATION
  Report Type: Spontaneous
  Country: US (occurrence: US)
  Receive Date: 20160521
  Receipt Date: 20160912
  Transmission Date: 20161109
  Serious: No
  Sender: FDA-Public Use
  Company Number: US-009507513-1604USA017265

PATIENT
  Age: 21 Year
  Sex: Female
  Weight: 125.17 kg

DRUGS (1)
  1. NEXPLANON [Suspect]
     Active Substance: ETONOGESTREL
     Indication: CONTRACEPTION
     Dosage: 1 ROD/ 3 YEARS IN RIGHT UPPER ARM
     Route: 059
     Dates: start: 20130509, end: 20160425

REACTIONS (5)
  - Vaginal haemorrhage [Recovered/Resolved]
  - Complication of device removal [Recovered/Resolved]
  - Dyspnoea [Unknown]
  - Device breakage [Recovered/Resolved]
  - Product quality issue [Unknown]

NARRATIVE: CASE EVENT DATE: 201603
